FAERS Safety Report 5914779-0 (Version None)
Quarter: 2008Q4

REPORT INFORMATION
  Report Type: 
  Country: None (occurrence: None)
  Receive Date: 20081010
  Receipt Date: 20081002
  Transmission Date: 20090506
  Serious: Yes (Other)
  Sender: FDA-Public Use
  Company Number: US-PURDUE-DEU_2008_0004493

PATIENT
  Age: 57 Year
  Sex: Female

DRUGS (1)
  1. OXYCODONE HCL [Suspect]
     Indication: BACK PAIN
     Dosage: 10 MG, PRN
     Route: 048

REACTIONS (2)
  - SLEEP APNOEA SYNDROME [None]
  - SOMNOLENCE [None]
